FAERS Safety Report 8845868 (Version 1)
Quarter: 2012Q4

REPORT INFORMATION
  Report Type: 
  Country: US (occurrence: US)
  Receive Date: 20121017
  Receipt Date: 20121017
  Transmission Date: 20130627
  Serious: Yes (Other)
  Sender: FDA-Public Use
  Company Number: US-ROCHE-GNE306000

PATIENT
  Age: 1 Year
  Sex: Female
  Weight: 7.21 kg

DRUGS (8)
  1. NUTROPIN AQ [Suspect]
     Indication: HYPOGLYCAEMIA
     Dosage: 0.3 mL, qd
     Route: 058
  2. NUTROPIN AQ [Suspect]
     Indication: DWARFISM
  3. NUTROPIN AQ [Suspect]
     Indication: GROWTH HORMONE DEFICIENCY
  4. NUTROPIN AQ [Suspect]
     Indication: DWARFISM
  5. BENADRYL [Concomitant]
     Indication: PRODUCT USED FOR UNKNOWN INDICATION
  6. ZANTAC [Concomitant]
     Indication: PRODUCT USED FOR UNKNOWN INDICATION
  7. ZYRTEC [Concomitant]
     Indication: PRODUCT USED FOR UNKNOWN INDICATION
  8. HYDROXYZINE [Concomitant]
     Indication: PRODUCT USED FOR UNKNOWN INDICATION

REACTIONS (2)
  - Urticaria [Unknown]
  - Blood glucose increased [Unknown]
